FAERS Safety Report 9320589 (Version 1)
Quarter: 2013Q2

REPORT INFORMATION
  Report Type: Report from Study
  Country: CO (occurrence: CO)
  Receive Date: 20130531
  Receipt Date: 20130531
  Transmission Date: 20140414
  Serious: Yes (Hospitalization)
  Sender: FDA-Public Use
  Company Number: CO-ROCHE-1230910

PATIENT
  Age: 11 Year
  Sex: Male

DRUGS (1)
  1. DORNASE ALFA [Suspect]
     Indication: CYSTIC FIBROSIS
     Route: 055
     Dates: start: 20020221

REACTIONS (1)
  - Weight decreased [Recovered/Resolved]
